FAERS Safety Report 7301887-5 (Version None)
Quarter: 2011Q1

REPORT INFORMATION
  Report Type: 
  Country: None (occurrence: None)
  Receive Date: 20110218
  Receipt Date: 20110208
  Transmission Date: 20110831
  Serious: Yes (Other)
  Sender: FDA-Public Use
  Company Number: FR-ROCHE-746307

PATIENT
  Sex: Male
  Weight: 63 kg

DRUGS (9)
  1. PEGASYS [Suspect]
     Indication: HEPATITIS C
     Route: 058
     Dates: start: 20100111, end: 20100515
  2. COPEGUS [Suspect]
     Indication: HEPATITIS C
     Dosage: DOSING FREQ: DAILY
     Route: 048
     Dates: start: 20100111, end: 20100515
  3. COPEGUS [Suspect]
     Route: 048
     Dates: start: 20101030
  4. PEGASYS [Suspect]
     Route: 058
     Dates: start: 20101030
  5. PEGASYS [Suspect]
     Route: 058
     Dates: start: 20101108
  6. PLAVIX [Concomitant]
     Indication: PERIPHERAL ARTERIAL OCCLUSIVE DISEASE
     Route: 048
     Dates: start: 20070101
  7. ACETAMINOPHEN [Concomitant]
  8. PEGASYS [Suspect]
     Route: 058
  9. IMOVANE [Concomitant]

REACTIONS (4)
  - GAMMA-GLUTAMYLTRANSFERASE INCREASED [None]
  - PLATELET COUNT DECREASED [None]
  - TRANSAMINASES INCREASED [None]
  - CYTOLYTIC HEPATITIS [None]
